FAERS Safety Report 7687231 (Version 2)
Quarter: 2013Q3

REPORT INFORMATION
  Report Type: Spontaneous
  Country: US (occurrence: US)
  Receive Date: 20101130
  Receipt Date: 20130817
  Transmission Date: 20140515
  Serious: Yes (Other)
  Sender: FDA-Public Use
  Company Number: US-ROCHE-722740

PATIENT
  Age: 25 Year
  Sex: Female
  Weight: 55.8 kg

DRUGS (2)
  1. ACCUTANE [Suspect]
     Indication: ACNE
     Route: 065
     Dates: start: 19860627, end: 198611
  2. ACCUTANE [Suspect]
     Route: 065
     Dates: start: 1988, end: 1989

REACTIONS (7)
  - Proctitis ulcerative [Unknown]
  - Gastrointestinal injury [Unknown]
  - Inflammatory bowel disease [Unknown]
  - Intestinal haemorrhage [Unknown]
  - Intestinal obstruction [Unknown]
  - Depression [Unknown]
  - Haemorrhoids [Unknown]
